FAERS Safety Report 20123103 (Version 1)
Quarter: 2021Q4

REPORT INFORMATION
  Report Type: Spontaneous
  Country: US (occurrence: US)
  Receive Date: 20211129
  Receipt Date: 20211129
  Transmission Date: 20220303
  Serious: No
  Sender: FDA-Public Use
  Company Number: US-UCBSA-2020043578

PATIENT
  Age: 63 Year
  Sex: Female

DRUGS (2)
  1. VIMPAT [Suspect]
     Active Substance: LACOSAMIDE
     Indication: Seizure
     Dosage: 50 MILLIGRAM,
  2. VIMPAT [Suspect]
     Active Substance: LACOSAMIDE
     Dosage: INCREASED  DOSE

REACTIONS (1)
  - Dyskinesia [Unknown]
